FAERS Safety Report 12696104 (Version 1)
Quarter: 2016Q3

REPORT INFORMATION
  Report Type: Spontaneous
  Country: US (occurrence: US)
  Receive Date: 20160829
  Receipt Date: 20160829
  Transmission Date: 20161109
  Serious: No
  Sender: FDA-Public Use
  Company Number: US-ASTRAZENECA-2016SE68388

PATIENT
  Sex: Female

DRUGS (4)
  1. TUJEO [Concomitant]
  2. NOVOLOG [Concomitant]
     Active Substance: INSULIN ASPART
  3. BYDUREON [Suspect]
     Active Substance: EXENATIDE
     Route: 065
  4. METFORMIN [Concomitant]
     Active Substance: METFORMIN HYDROCHLORIDE

REACTIONS (4)
  - Pain [Unknown]
  - Renal impairment [Unknown]
  - Nephrolithiasis [Unknown]
  - Diabetic gastroparesis [Unknown]
